FAERS Safety Report 4596067-0 (Version None)
Quarter: 2005Q1

REPORT INFORMATION
  Report Type: 
  Country: None (occurrence: None)
  Receive Date: 20050225
  Receipt Date: 20050210
  Transmission Date: 20050727
  Serious: No
  Sender: FDA-Public Use
  Company Number: 2005AP00168

PATIENT
  Age: 64 Year
  Sex: Female

DRUGS (2)
  1. SEROQUEL [Suspect]
     Indication: SCHIZOPHRENIA
     Dosage: 1000 MG DAILY PO
     Route: 048
     Dates: start: 20031201, end: 20050105
  2. TEMAZAPAM [Concomitant]

REACTIONS (3)
  - INSOMNIA [None]
  - LEUKOPENIA [None]
  - NEUTROPENIA [None]
